FAERS Safety Report 6664238-5 (Version None)
Quarter: 2010Q2

REPORT INFORMATION
  Report Type: 
  Country: None (occurrence: None)
  Receive Date: 20100401
  Receipt Date: 20100322
  Transmission Date: 20101027
  Serious: Yes (Other)
  Sender: FDA-Public Use
  Company Number: PHHY2010US18180

PATIENT
  Sex: Female

DRUGS (3)
  1. FEMARA [Suspect]
     Indication: BREAST CANCER
     Dosage: 2.5 MG, QD
     Route: 048
  2. ATENOL [Concomitant]
     Dosage: UNK
  3. CALCIUM PILLS [Concomitant]
     Dosage: UNK

REACTIONS (1)
  - LEUKAEMIA [None]
